FAERS Safety Report 7222120-9 (Version None)
Quarter: 2011Q1

REPORT INFORMATION
  Report Type: 
  Country: None (occurrence: None)
  Receive Date: 20110112
  Receipt Date: 20110107
  Transmission Date: 20110831
  Serious: Yes (Hospitalization)
  Sender: FDA-Public Use
  Company Number: BR-PFIZER INC-2011004562

PATIENT
  Sex: Male

DRUGS (1)
  1. LONITEN [Suspect]
     Indication: BLOOD PRESSURE INCREASED
     Route: 048

REACTIONS (1)
  - CARDIAC OPERATION [None]
